FAERS Safety Report 4631527-5 (Version None)
Quarter: 2005Q2

REPORT INFORMATION
  Report Type: 
  Country: None (occurrence: None)
  Receive Date: 20050407
  Receipt Date: 20050325
  Transmission Date: 20051028
  Serious: Yes (Other)
  Sender: FDA-Public Use
  Company Number: 2005052342

PATIENT
  Age: 15 Year
  Sex: Male

DRUGS (6)
  1. DOXORUBICIN HCL [Suspect]
     Indication: EWING'S SARCOMA
     Dosage: 35 MG/M2/DAY ON D8
  2. CYCLOPHOSPHAMIDE [Suspect]
     Indication: EWING'S SARCOMA
     Dosage: 150 MG/M2/DAY FROM D1 TO D7
  3. ETOPOSIDE [Suspect]
     Indication: EWING'S SARCOMA
     Dosage: 100 MG/M2/DAY FROM D1 TO D5
  4. IFOSFAMIDE [Suspect]
     Indication: EWING'S SARCOMA
     Dosage: 1.8 G/M2/DAY FROM D1 TO D5
  5. BUSULFAN (BUSULFAN) [Suspect]
     Indication: EWING'S SARCOMA
     Dosage: 140 MG/M2/DAY
  6. MELPHALAN (MELPHALAN) [Suspect]
     Indication: EWING'S SARCOMA
     Dosage: 140 MG/M2 ON D3

REACTIONS (4)
  - PORTAL VEIN THROMBOSIS [None]
  - POST PROCEDURAL COMPLICATION [None]
  - STEM CELL TRANSPLANT [None]
  - VENOOCCLUSIVE LIVER DISEASE [None]
